FAERS Safety Report 5447364-8 (Version None)
Quarter: 2007Q3

REPORT INFORMATION
  Report Type: 
  Country: None (occurrence: None)
  Receive Date: 20070910
  Receipt Date: 20070830
  Transmission Date: 20080115
  Serious: Yes (Hospitalization)
  Sender: FDA-Public Use
  Company Number: CA-AMGEN-US237046

PATIENT
  Sex: Male

DRUGS (7)
  1. PANITUMUMAB [Suspect]
     Indication: COLORECTAL CANCER
     Route: 042
     Dates: start: 20070403, end: 20070801
  2. OXALIPLATIN [Suspect]
     Route: 065
  3. LEUCOVORIN CALCIUM [Suspect]
     Route: 065
  4. FLUOROURACIL [Suspect]
     Route: 065
  5. FERROUS FUMARATE [Concomitant]
     Route: 065
  6. MAGNESIUM OXIDE [Concomitant]
     Route: 065
  7. EPREX [Concomitant]
     Route: 065

REACTIONS (3)
  - ASTHENIA [None]
  - FAILURE TO THRIVE [None]
  - FALL [None]
